FAERS Safety Report 10901779 (Version 1)
Quarter: 2015Q1

REPORT INFORMATION
  Report Type: Spontaneous
  Country: CA (occurrence: CA)
  Receive Date: 20150310
  Receipt Date: 20150310
  Transmission Date: 20150721
  Serious: Yes (Other)
  Sender: FDA-Public Use
  Company Number: CA-TEVA-545918ACC

PATIENT
  Age: 59 Year
  Sex: Male
  Weight: 99 kg

DRUGS (5)
  1. ASPIRIN. [Concomitant]
     Active Substance: ASPIRIN
     Dosage: UNKNOWN FORM STRENGTH
     Route: 065
  2. TEVA-METOPROLOL UNCOATED [Suspect]
     Active Substance: METOPROLOL
     Indication: CARDIAC FAILURE
     Dosage: 200 MILLIGRAM DAILY;
     Route: 048
  3. BIO-FUROSEMIDE [Concomitant]
     Dosage: UNKNOWN FORM STRENGTH
     Route: 065
  4. INSPRA [Concomitant]
     Active Substance: EPLERENONE
     Dosage: UNKNOWN FORM STRENGTH
     Route: 065
  5. PERINDOPRIL [Concomitant]
     Active Substance: PERINDOPRIL
     Dosage: UNKNOWN FORM STRENGTH
     Route: 065

REACTIONS (3)
  - Fatigue [Recovered/Resolved]
  - Arthralgia [Recovered/Resolved]
  - Myalgia [Recovered/Resolved]
